FAERS Safety Report 7132854-2 (Version None)
Quarter: 2010Q4

REPORT INFORMATION
  Report Type: 
  Country: None (occurrence: None)
  Receive Date: 20101202
  Receipt Date: 20101126
  Transmission Date: 20110411
  Serious: Yes (Other)
  Sender: FDA-Public Use
  Company Number: FR-BRISTOL-MYERS SQUIBB COMPANY-15284318

PATIENT
  Age: 21 Year
  Sex: Male
  Weight: 82 kg

DRUGS (3)
  1. REYATAZ [Suspect]
     Indication: HIV INFECTION
     Route: 048
     Dates: start: 20100712, end: 20100914
  2. TRUVADA [Suspect]
     Indication: HIV INFECTION
     Dosage: 1 DF: 1 TAB RESTARTED ON 12-OCT-2010
     Route: 048
     Dates: start: 20100712
  3. NORVIR [Suspect]
     Indication: HIV INFECTION
     Dosage: 1 DF: 1 TAB RESTARTED ON 12-OCT-2010
     Route: 048
     Dates: start: 20100712

REACTIONS (1)
  - HEPATITIS [None]
